FAERS Safety Report 4455415-2 (Version None)
Quarter: 2004Q3

REPORT INFORMATION
  Report Type: 
  Country: None (occurrence: None)
  Receive Date: 20040830
  Receipt Date: 20040609
  Transmission Date: 20050211
  Serious: No
  Sender: FDA-Public Use
  Company Number: 207081

PATIENT
  Age: 33 Year
  Sex: Female
  Weight: 58 kg

DRUGS (1)
  1. XOLAIR [Suspect]
     Indication: ASTHMA
     Dosage: 150 MG,Q4W,SUBCUTANEOUS
     Route: 058
     Dates: start: 20040423

REACTIONS (3)
  - DYSPHAGIA [None]
  - RASH [None]
  - THROAT TIGHTNESS [None]
